FAERS Safety Report 6557432-5 (Version None)
Quarter: 2010Q1

REPORT INFORMATION
  Report Type: 
  Country: None (occurrence: None)
  Receive Date: 20100129
  Receipt Date: 20100115
  Transmission Date: 20100710
  Serious: Yes (Other)
  Sender: FDA-Public Use
  Company Number: GB-TYCO HEALTHCARE/MALLINCKRODT-T201000265

PATIENT
  Sex: Male

DRUGS (1)
  1. PAMELOR [Suspect]
     Indication: MAJOR DEPRESSION
     Dosage: UNK

REACTIONS (1)
  - SUICIDAL IDEATION [None]
